FAERS Safety Report 7829517-4 (Version None)
Quarter: 2011Q4

REPORT INFORMATION
  Report Type: 
  Country: None (occurrence: None)
  Receive Date: 20111020
  Receipt Date: 20110923
  Transmission Date: 20120403
  Serious: Yes (Other)
  Sender: FDA-Public Use
  Company Number: US-ROCHE-1001327

PATIENT
  Sex: Male

DRUGS (1)
  1. RITUXAN [Suspect]
     Indication: NON-HODGKIN'S LYMPHOMA

REACTIONS (4)
  - MENTAL DISORDER [None]
  - PSYCHOTIC DISORDER [None]
  - SUICIDAL IDEATION [None]
  - PERSONALITY DISORDER [None]
